FAERS Safety Report 19865180 (Version 3)
Quarter: 2025Q2

REPORT INFORMATION
  Report Type: Spontaneous
  Country: ES (occurrence: ES)
  Receive Date: 20210922
  Receipt Date: 20250623
  Transmission Date: 20250716
  Serious: Yes (Other)
  Sender: BRISTOL-MYERS SQUIBB COMPANY
  Company Number: ES-BRISTOL-MYERS SQUIBB COMPANY-BMS-2021-093293

PATIENT
  Age: 19 Year
  Sex: Female

DRUGS (10)
  1. NIVOLUMAB [Suspect]
     Active Substance: NIVOLUMAB
     Indication: Hodgkin^s disease nodular sclerosis stage II
     Dosage: 9 CYCLES (3 MG/KG, 1 IN 2 WK)
     Dates: start: 201711
  2. IFOSFAMIDE [Concomitant]
     Active Substance: IFOSFAMIDE
     Indication: Hodgkin^s disease nodular sclerosis stage II
     Dosage: 9 CYCLES (3 MG/KG, 1 IN 2 WK)
     Dates: start: 201711
  3. BENDAMUSTINE [Concomitant]
     Active Substance: BENDAMUSTINE
     Indication: Hodgkin^s disease nodular sclerosis stage II
     Dates: start: 201804
  4. MYCOPHENOLATE MOFETIL [Concomitant]
     Active Substance: MYCOPHENOLATE MOFETIL
     Indication: Product used for unknown indication
  5. CYCLOPHOSPHAMIDE [Concomitant]
     Active Substance: CYCLOPHOSPHAMIDE
     Indication: Prophylaxis against graft versus host disease
  6. FLUDARABINE [Concomitant]
     Active Substance: FLUDARABINE PHOSPHATE
     Indication: Prophylaxis against graft versus host disease
  7. SIROLIMUS [Concomitant]
     Active Substance: SIROLIMUS
     Indication: Prophylaxis against graft versus host disease
  8. SIROLIMUS [Concomitant]
     Active Substance: SIROLIMUS
  9. SIROLIMUS [Concomitant]
     Active Substance: SIROLIMUS
  10. BUSULFAN [Concomitant]
     Active Substance: BUSULFAN
     Indication: Prophylaxis against graft versus host disease

REACTIONS (3)
  - Graft versus host disease in skin [Recovered/Resolved]
  - Graft versus host disease in gastrointestinal tract [Recovered/Resolved]
  - Pruritus [Unknown]
